FAERS Safety Report 24072557 (Version 1)
Quarter: 2024Q3

REPORT INFORMATION
  Report Type: Spontaneous
  Country: US (occurrence: None)
  Receive Date: 20240709
  Receipt Date: 20240709
  Transmission Date: 20241017
  Serious: Yes (Hospitalization)
  Sender: Public
  Company Number: None

PATIENT
  Age: 46 Year
  Sex: Male
  Weight: 99.9 kg

DRUGS (2)
  1. TIRZEPATIDE [Suspect]
     Active Substance: TIRZEPATIDE
     Indication: Obesity
     Dosage: OTHER FREQUENCY : WEEKLY;?
     Route: 058
     Dates: start: 20240506, end: 20240610
  2. TIRZEPATIDE [Concomitant]
     Active Substance: TIRZEPATIDE
     Dates: start: 20240506, end: 20240610

REACTIONS (1)
  - Abdominal discomfort [None]

NARRATIVE: CASE EVENT DATE: 20240616
